FAERS Safety Report 19190390 (Version 4)
Quarter: 2022Q3

REPORT INFORMATION
  Report Type: Report from Study
  Country: US (occurrence: US)
  Receive Date: 20210428
  Receipt Date: 20220809
  Transmission Date: 20221027
  Serious: Yes (Other)
  Sender: FDA-Public Use
  Company Number: NVSC2021US096035

PATIENT
  Sex: Female

DRUGS (1)
  1. ENTRESTO [Suspect]
     Active Substance: SACUBITRIL\VALSARTAN
     Indication: Product used for unknown indication
     Dosage: 50 MG, BID (24.3 MG OF SACUBITRIL AND 25.7 MG OF VALSARTAN)
     Route: 048

REACTIONS (3)
  - Neoplasm malignant [Unknown]
  - Illness [Unknown]
  - Rash [Recovering/Resolving]
